FAERS Safety Report 8382415-2 (Version None)
Quarter: 2012Q2

REPORT INFORMATION
  Report Type: 
  Country: None (occurrence: None)
  Receive Date: 20120524
  Receipt Date: 20120511
  Transmission Date: 20120825
  Serious: Yes (Other)
  Sender: FDA-Public Use
  Company Number: PHHY2012BR041156

PATIENT
  Sex: Male

DRUGS (4)
  1. COMBIVENT [Suspect]
     Dosage: AT NIGHT
  2. AEROLIN [Suspect]
     Dosage: AT NIGHT
  3. FORMOTEROL FUMARATE [Suspect]
     Dosage: 1 DF IN THE MORNING AND AT NIGHT
  4. ONBREZ [Suspect]
     Dosage: UNK UKN, UNK

REACTIONS (5)
  - INFLUENZA [None]
  - EMPHYSEMA [None]
  - CONDITION AGGRAVATED [None]
  - GAIT DISTURBANCE [None]
  - SPEECH DISORDER [None]
